FAERS Safety Report 25534295 (Version 1)
Quarter: 2025Q3

REPORT INFORMATION
  Report Type: Spontaneous
  Country: US (occurrence: None)
  Receive Date: 20250708
  Receipt Date: 20250708
  Transmission Date: 20251020
  Serious: Yes (Other)
  Sender: FDA-CTU
  Company Number: None

PATIENT
  Age: 65 Year
  Sex: Female
  Weight: 54 kg

DRUGS (3)
  1. ALENDRONATE [Suspect]
     Active Substance: ALENDRONATE SODIUM
     Indication: Osteoporosis
     Route: 048
     Dates: start: 20250702, end: 20250702
  2. CALCIUM\VITAMIN D [Concomitant]
     Active Substance: CALCIUM\VITAMIN D
  3. K2 COLLAGEN [Concomitant]

REACTIONS (13)
  - Nausea [None]
  - Dyspepsia [None]
  - Pain in extremity [None]
  - Pain in extremity [None]
  - Insomnia [None]
  - Fatigue [None]
  - Arthralgia [None]
  - Arthralgia [None]
  - Arthralgia [None]
  - Chest pain [None]
  - Weight decreased [None]
  - Osteoporosis [None]
  - Movement disorder [None]

NARRATIVE: CASE EVENT DATE: 20250702
